FAERS Safety Report 17817394 (Version 1)
Quarter: 2020Q2

REPORT INFORMATION
  Report Type: Other
  Country: SK (occurrence: SK)
  Receive Date: 20200522
  Receipt Date: 20200522
  Transmission Date: 20200714
  Serious: Yes (Hospitalization)
  Sender: FDA-Public Use
  Company Number: SK-B.BRAUN MEDICAL INC.-2084120

PATIENT
  Age: 35 Year
  Sex: Female

DRUGS (10)
  1. POTASSIUM CHLORIDE. [Concomitant]
     Active Substance: POTASSIUM CHLORIDE
     Route: 042
  2. DEXTROSE INJECTIONS USP 0264-7510-00 0264-7510-20 [Suspect]
     Active Substance: DEXTROSE
     Indication: FLUID REPLACEMENT
     Route: 042
  3. CARVEDILOL. [Concomitant]
     Active Substance: CARVEDILOL
     Route: 048
  4. SERTRALINE [Concomitant]
     Active Substance: SERTRALINE HYDROCHLORIDE
  5. METOCLOPRAMIDE. [Concomitant]
     Active Substance: METOCLOPRAMIDE
  6. MAGNESIUM SULFATE. [Concomitant]
     Active Substance: MAGNESIUM SULFATE
     Route: 042
  7. RANITIDINE. [Concomitant]
     Active Substance: RANITIDINE
     Route: 042
  8. PARENTERAL NUTRITION SUPPLEMENTS [Concomitant]
  9. URAPIDIL [Concomitant]
     Active Substance: URAPIDIL
     Route: 041
  10. CEFUROXIME. [Concomitant]
     Active Substance: CEFUROXIME
     Route: 048

REACTIONS (1)
  - Wernicke^s encephalopathy [None]
